FAERS Safety Report 13433154 (Version 1)
Quarter: 2017Q2

REPORT INFORMATION
  Report Type: Spontaneous
  Country: US (occurrence: US)
  Receive Date: 20170412
  Receipt Date: 20170412
  Transmission Date: 20170830
  Serious: No
  Sender: FDA-Public Use
  Company Number: US-NOVOPROD-537877

PATIENT
  Sex: Female

DRUGS (2)
  1. SAXENDA [Suspect]
     Active Substance: LIRAGLUTIDE
     Dosage: DECREASED DOSE
     Route: 058
  2. SAXENDA [Suspect]
     Active Substance: LIRAGLUTIDE
     Indication: PRODUCT USED FOR UNKNOWN INDICATION
     Dosage: 1.8 MG, QD
     Route: 058

REACTIONS (3)
  - Injection site erythema [Unknown]
  - Injection site urticaria [Unknown]
  - Injection site pruritus [Unknown]
